FAERS Safety Report 9729762 (Version 1)
Quarter: 2013Q4

REPORT INFORMATION
  Report Type: Spontaneous
  Country: US (occurrence: US)
  Receive Date: 20131204
  Receipt Date: 20131204
  Transmission Date: 20140711
  Serious: No
  Sender: FDA-Public Use
  Company Number: US-GILEAD-2009-0022451

PATIENT
  Age: 72 Year
  Sex: Female

DRUGS (11)
  1. LETAIRIS [Suspect]
     Indication: PULMONARY ARTERIAL HYPERTENSION
     Route: 048
     Dates: start: 20090309
  2. LASIX [Concomitant]
  3. ISOSORBIDE MONONITRATE [Concomitant]
  4. METOPROLOL ER [Concomitant]
  5. ASPIRIN [Concomitant]
  6. SIMVASTATIN [Concomitant]
  7. CLONAZEPAM [Concomitant]
  8. LEVOFLOXACIN [Concomitant]
  9. PRILOSEC [Concomitant]
  10. CALCIUM [Concomitant]
  11. MVI [Concomitant]

REACTIONS (1)
  - Oedema peripheral [Not Recovered/Not Resolved]
